FAERS Safety Report 9901543 (Version 2)
Quarter: 2015Q3

REPORT INFORMATION
  Report Type: Spontaneous
  Country: US (occurrence: US)
  Receive Date: 20140217
  Receipt Date: 20150810
  Transmission Date: 20151125
  Serious: No
  Sender: FDA-Public Use
  Company Number: US-GILEAD-2011-0042784

PATIENT
  Age: 70 Year
  Sex: Female

DRUGS (15)
  1. LETAIRIS [Suspect]
     Active Substance: AMBRISENTAN
     Indication: PULMONARY HYPERTENSION
     Route: 048
     Dates: start: 20110607
  2. ASMANEX [Concomitant]
     Active Substance: MOMETASONE FUROATE
  3. OMEPRAZOLE. [Concomitant]
     Active Substance: OMEPRAZOLE
  4. MVI [Concomitant]
     Active Substance: VITAMINS
  5. SUCRALFATE. [Concomitant]
     Active Substance: SUCRALFATE
  6. FUROSEMIDE. [Concomitant]
     Active Substance: FUROSEMIDE
  7. LETAIRIS [Suspect]
     Active Substance: AMBRISENTAN
     Route: 048
     Dates: start: 20110428, end: 20110607
  8. WARFARIN [Concomitant]
     Active Substance: WARFARIN
  9. IPRATROPIUM [Concomitant]
     Active Substance: IPRATROPIUM
  10. VYTORIN [Concomitant]
     Active Substance: EZETIMIBE\SIMVASTATIN
  11. SPIRONOLACTONE. [Concomitant]
     Active Substance: SPIRONOLACTONE
  12. ATENOLOL. [Concomitant]
     Active Substance: ATENOLOL
  13. CARISOPRODOL. [Concomitant]
     Active Substance: CARISOPRODOL
  14. ASA [Concomitant]
     Active Substance: ASPIRIN
  15. HYDROCODONE/APAP [Concomitant]
     Active Substance: ACETAMINOPHEN\HYDROCODONE BITARTRATE

REACTIONS (4)
  - Insomnia [Recovered/Resolved]
  - Headache [Recovered/Resolved]
  - Urinary retention [Recovered/Resolved]
  - Constipation [Recovered/Resolved]

NARRATIVE: CASE EVENT DATE: 20110725
